FAERS Safety Report 4814544-1 (Version None)
Quarter: 2005Q4

REPORT INFORMATION
  Report Type: 
  Country: None (occurrence: None)
  Receive Date: 20051028
  Receipt Date: 20051024
  Transmission Date: 20060501
  Serious: Yes (Hospitalization)
  Sender: FDA-Public Use
  Company Number: PHNU2005DE03543

PATIENT
  Age: 40 Year
  Sex: Male

DRUGS (2)
  1. LOCOL [Suspect]
     Indication: HYPERCHOLESTEROLAEMIA
     Route: 048
     Dates: start: 20050101, end: 20050101
  2. EZETROL [Concomitant]

REACTIONS (5)
  - CONDITION AGGRAVATED [None]
  - MUSCLE SPASMS [None]
  - MUSCULOSKELETAL STIFFNESS [None]
  - RESTLESSNESS [None]
  - SLEEP APNOEA SYNDROME [None]
